FAERS Safety Report 10538820 (Version 1)
Quarter: 2014Q4

REPORT INFORMATION
  Report Type: Spontaneous
  Country: CO (occurrence: CO)
  Receive Date: 20141023
  Receipt Date: 20141023
  Transmission Date: 20150529
  Serious: Yes (Death)
  Sender: FDA-Public Use
  Company Number: CO-AMGEN-COLSL2014081252

PATIENT
  Age: 62 Year
  Sex: Male

DRUGS (1)
  1. NPLATE [Suspect]
     Active Substance: ROMIPLOSTIM
     Indication: THROMBOCYTOPENIA
     Dosage: 125 MUG, QWK
     Route: 058
     Dates: start: 20140926

REACTIONS (1)
  - Death [Fatal]

NARRATIVE: CASE EVENT DATE: 20141015
